FAERS Safety Report 9240937 (Version 1)
Quarter: 2013Q1

REPORT INFORMATION
  Report Type: Spontaneous
  Country: US (occurrence: None)
  Receive Date: 20121120
  Receipt Date: 20121120
  Transmission Date: 20140127
  Serious: No
  Sender: FDA-Public Use
  Company Number: 1000039459

PATIENT
  Age: 39 Year
  Sex: Female

DRUGS (2)
  1. VIIBRYD [Suspect]
     Dosage: (30 MG, 1 IN 1 D)
     Dates: start: 201209, end: 2012
  2. VIIBRYD [Suspect]
     Dates: start: 2012

REACTIONS (4)
  - Psychomotor hyperactivity [None]
  - Nervousness [None]
  - Urticaria [None]
  - Palpitations [None]
